FAERS Safety Report 7561353-9 (Version None)
Quarter: 2011Q2

REPORT INFORMATION
  Report Type: 
  Country: None (occurrence: None)
  Receive Date: 20110621
  Receipt Date: 20100824
  Transmission Date: 20111010
  Serious: No
  Sender: FDA-Public Use
  Company Number: US-ASTRAZENECA-2010SE36084

PATIENT
  Age: 79 Year
  Sex: Male

DRUGS (1)
  1. PULMICORT [Suspect]
     Indication: EMPHYSEMA
     Route: 055
     Dates: start: 20100730, end: 20100801

REACTIONS (2)
  - DYSPNOEA [None]
  - COUGH [None]
